FAERS Safety Report 7383058-X (Version None)
Quarter: 2011Q1

REPORT INFORMATION
  Report Type: 
  Country: None (occurrence: None)
  Receive Date: 20110330
  Receipt Date: 20110328
  Transmission Date: 20110831
  Serious: No
  Sender: FDA-Public Use
  Company Number: US-PFIZER INC-2011068926

PATIENT
  Sex: Female
  Weight: 65.8 kg

DRUGS (3)
  1. ZOLOFT [Concomitant]
     Dosage: UNK
  2. LIPITOR [Suspect]
     Indication: BLOOD CHOLESTEROL INCREASED
     Dosage: 10 MG, DAILY
     Route: 048
  3. WELLBUTRIN [Concomitant]
     Dosage: UNK

REACTIONS (1)
  - ALOPECIA [None]
